FAERS Safety Report 8281953 (Version 3)
Quarter: 2013Q3

REPORT INFORMATION
  Report Type: Report from Study
  Country: FR (occurrence: FR)
  Receive Date: 20111209
  Receipt Date: 20130826
  Transmission Date: 20140515
  Serious: Yes (Hospitalization)
  Sender: FDA-Public Use
  Company Number: FR-ROCHE-1017039

PATIENT
  Age: 75 Year
  Sex: Female
  Weight: 59 kg

DRUGS (6)
  1. TEMOZOLOMIDE [Suspect]
     Indication: BRAIN NEOPLASM MALIGNANT
     Dosage: LAST DOSE PRIOR TO SAE: 15-FEB-2011
     Route: 048
     Dates: start: 20101214
  2. BEVACIZUMAB [Suspect]
     Indication: BRAIN NEOPLASM MALIGNANT
     Dosage: LAST DOSE PRIOR TO SAE: 2 MAR 2011
     Route: 065
     Dates: start: 20101214
  3. INEXIUM [Concomitant]
     Route: 048
  4. LOVENOX [Concomitant]
     Route: 058
  5. BACTRIM [Concomitant]
     Dosage: 1 TABLET
     Route: 048
  6. MEDROL [Concomitant]
     Route: 048

REACTIONS (3)
  - Gait disturbance [Recovered/Resolved]
  - Ill-defined disorder [Recovered/Resolved]
  - Back pain [Unknown]
